FAERS Safety Report 15969383 (Version 3)
Quarter: 2021Q2

REPORT INFORMATION
  Report Type: Spontaneous
  Country: US (occurrence: US)
  Receive Date: 20190215
  Receipt Date: 20210517
  Transmission Date: 20210716
  Serious: Yes (Other)
  Sender: FDA-Public Use
  Company Number: PHEH2019US006812

PATIENT
  Sex: Male

DRUGS (1)
  1. TASIGNA [Suspect]
     Active Substance: NILOTINIB
     Indication: CHRONIC MYELOID LEUKAEMIA
     Dosage: UNK UNK, QD
     Route: 048
     Dates: start: 2006, end: 201601

REACTIONS (11)
  - Neutropenia [Unknown]
  - Hyponatraemia [Unknown]
  - Pain [Unknown]
  - Injury [Unknown]
  - Amnesia [Unknown]
  - Diabetes mellitus [Unknown]
  - Hypogonadism male [Unknown]
  - Peripheral vascular disorder [Unknown]
  - Arteriosclerosis [Unknown]
  - Emotional distress [Unknown]
  - Anxiety [Unknown]

NARRATIVE: CASE EVENT DATE: 2009
